FAERS Safety Report 21273935 (Version 25)
Quarter: 2024Q3

REPORT INFORMATION
  Report Type: Spontaneous
  Country: US (occurrence: US)
  Receive Date: 20220831
  Receipt Date: 20240822
  Transmission Date: 20241017
  Serious: Yes (Hospitalization, Other)
  Sender: PFIZER
  Company Number: US-PFIZER INC-PV202200053990

PATIENT
  Age: 71 Year
  Sex: Female
  Weight: 54.43 kg

DRUGS (5)
  1. BOSULIF [Suspect]
     Active Substance: BOSUTINIB MONOHYDRATE
     Indication: Chronic myeloid leukaemia
     Dosage: 300 MG (100 MG X3), DAILY X 28 DAYS
     Route: 048
  2. BOSULIF [Suspect]
     Active Substance: BOSUTINIB MONOHYDRATE
     Dosage: 300 MG (3 TAB), CYCLIC, QD FOR A 28-DAY CYCLE
     Route: 048
  3. BOSULIF [Suspect]
     Active Substance: BOSUTINIB MONOHYDRATE
     Dosage: 300 MG, 1X/DAY (3 TAB, Q DAY))
     Route: 048
  4. BOSULIF [Suspect]
     Active Substance: BOSUTINIB MONOHYDRATE
     Dosage: 200 MG, 1X/DAY (2 TAB Q (EVERY) DAY X28 DAY)
     Route: 048
  5. BOSULIF [Suspect]
     Active Substance: BOSUTINIB MONOHYDRATE
     Dosage: 100 MG, 1X/DAY (1 TAB PO(PER ORAL) QDAY(ONCE A DAY),X28 DAY)
     Route: 048

REACTIONS (10)
  - Thrombosis [Unknown]
  - Cardiovascular disorder [Unknown]
  - Sensory disturbance [Unknown]
  - Dyspnoea [Unknown]
  - Foot fracture [Unknown]
  - Fall [Unknown]
  - Body height decreased [Unknown]
  - Fatigue [Unknown]
  - Pain [Unknown]
  - Vomiting [Unknown]

NARRATIVE: CASE EVENT DATE: 20220101
